FAERS Safety Report 4957395-X (Version None)
Quarter: 2006Q1

REPORT INFORMATION
  Report Type: 
  Country: None (occurrence: None)
  Receive Date: 20060327
  Receipt Date: 20060313
  Transmission Date: 20060701
  Serious: Yes (Life-Threatening, Disabling, Other)
  Sender: FDA-Public Use
  Company Number: HQWYE079701MAR06

PATIENT
  Age: 36 Year
  Sex: Male

DRUGS (9)
  1. EFFEXOR XR [Suspect]
     Indication: DEPRESSION
     Dosage: ^STARTER PACK^ ORAL ; 75 MG 1X PER 1 DAY ORAL ; 150 MG 1X PER 1 DAY ORAL
     Route: 048
     Dates: start: 20050211, end: 20050328
  2. EFFEXOR XR [Suspect]
     Indication: DEPRESSION
     Dosage: ^STARTER PACK^ ORAL ; 75 MG 1X PER 1 DAY ORAL ; 150 MG 1X PER 1 DAY ORAL
     Route: 048
     Dates: start: 20050329, end: 20050401
  3. EFFEXOR XR [Suspect]
     Indication: DEPRESSION
     Dosage: ^STARTER PACK^ ORAL ; 75 MG 1X PER 1 DAY ORAL ; 150 MG 1X PER 1 DAY ORAL
     Route: 048
     Dates: start: 20050401, end: 20050901
  4. OXYCONTIN [Concomitant]
  5. XANAX [Concomitant]
  6. ZESTRIL [Concomitant]
  7. ZOCOR [Concomitant]
  8. ACIPHEX [Concomitant]
  9. ZYPREXA [Concomitant]

REACTIONS (6)
  - DYSARTHRIA [None]
  - FEELING ABNORMAL [None]
  - IMPAIRED WORK ABILITY [None]
  - LOSS OF EMPLOYMENT [None]
  - NARCOLEPSY [None]
  - ROAD TRAFFIC ACCIDENT [None]
